FAERS Safety Report 21271818 (Version 2)
Quarter: 2023Q1

REPORT INFORMATION
  Report Type: Report from Study
  Country: CZ (occurrence: CZ)
  Receive Date: 20220830
  Receipt Date: 20230211
  Transmission Date: 20230418
  Serious: Yes (Disabling)
  Sender: FDA-Public Use
  Company Number: CZ-ABBVIE-22K-217-4521782-00

PATIENT
  Age: 23 Year
  Sex: Female

DRUGS (1)
  1. HUMIRA [Suspect]
     Active Substance: ADALIMUMAB
     Indication: Juvenile idiopathic arthritis
     Route: 058
     Dates: start: 20200805, end: 20220615

REACTIONS (1)
  - Meniere^s disease [Recovered/Resolved]

NARRATIVE: CASE EVENT DATE: 20220314
